FAERS Safety Report 5499995-7 (Version None)
Quarter: 2007Q4

REPORT INFORMATION
  Report Type: 
  Country: None (occurrence: None)
  Receive Date: 20071026
  Receipt Date: 20071016
  Transmission Date: 20080405
  Serious: Yes (Hospitalization, Other)
  Sender: FDA-Public Use
  Company Number: GB-PFIZER INC-2007087752

PATIENT
  Sex: Male

DRUGS (3)
  1. LIPITOR [Suspect]
  2. INFLUENZA VACCINE [Interacting]
  3. WARFARIN SODIUM [Concomitant]

REACTIONS (4)
  - DRUG INTERACTION [None]
  - PROTHROMBIN TIME SHORTENED [None]
  - RENAL HAEMORRHAGE [None]
  - RENAL PAIN [None]
